FAERS Safety Report 10766177 (Version 1)
Quarter: 2015Q1

REPORT INFORMATION
  Report Type: Spontaneous
  Country: US (occurrence: None)
  Receive Date: 20150204
  Receipt Date: 20150204
  Transmission Date: 20150721
  Serious: Yes (Hospitalization)
  Sender: FDA-Public Use
  Company Number: DL2015-0152

PATIENT
  Age: 21 Year
  Sex: Female

DRUGS (3)
  1. MIFEPRISTONE [Suspect]
     Active Substance: MIFEPRISTONE
     Indication: ABORTION INDUCED
     Route: 048
     Dates: start: 20141210
  2. MISOPROSTOL TABLETS, 200 MCG [Suspect]
     Active Substance: MISOPROSTOL
     Route: 002
     Dates: start: 20141211
  3. AZITHROMYCIN [Concomitant]
     Active Substance: AZITHROMYCIN ANHYDROUS

REACTIONS (3)
  - Vomiting [None]
  - Pain [None]
  - Ruptured ectopic pregnancy [None]

NARRATIVE: CASE EVENT DATE: 20141221
